FAERS Safety Report 9951334 (Version 4)
Quarter: 2015Q2

REPORT INFORMATION
  Report Type: Spontaneous
  Country: JP (occurrence: JP)
  Receive Date: 20140304
  Receipt Date: 20150409
  Transmission Date: 20150821
  Serious: Yes (Death, Hospitalization)
  Sender: FDA-Public Use
  Company Number: JP-SA-2013SA103372

PATIENT
  Age: 52 Year
  Sex: Female
  Weight: 60.6 kg

DRUGS (2)
  1. DOCETAXEL. [Suspect]
     Active Substance: DOCETAXEL
     Indication: BREAST CANCER
     Route: 042
     Dates: start: 201305, end: 201308
  2. DOCETAXEL. [Suspect]
     Active Substance: DOCETAXEL
     Indication: BREAST CANCER
     Route: 065
     Dates: start: 2013, end: 20130906

REACTIONS (12)
  - Decreased appetite [Fatal]
  - Ileus [Fatal]
  - Acute respiratory distress syndrome [Fatal]
  - Pulmonary oedema [Fatal]
  - Generalised oedema [Fatal]
  - Disseminated intravascular coagulation [Fatal]
  - Dyspnoea [Fatal]
  - Febrile neutropenia [Recovering/Resolving]
  - Gastrointestinal oedema [Fatal]
  - Multi-organ disorder [Fatal]
  - Pleural effusion [Fatal]
  - Pyrexia [Unknown]

NARRATIVE: CASE EVENT DATE: 2013
